FAERS Safety Report 6253402-5 (Version None)
Quarter: 2009Q3

REPORT INFORMATION
  Report Type: 
  Country: None (occurrence: None)
  Receive Date: 20090701
  Receipt Date: 20090623
  Transmission Date: 20100115
  Serious: Yes (Hospitalization)
  Sender: FDA-Public Use
  Company Number: CA-AMGEN-QUU352950

PATIENT
  Age: 59 Year
  Sex: Male

DRUGS (2)
  1. ENBREL [Suspect]
     Indication: PSORIATIC ARTHROPATHY
     Dates: start: 20070101
  2. METHOTREXATE [Concomitant]

REACTIONS (3)
  - EMBOLIC STROKE [None]
  - ENDOCARDITIS BACTERIAL [None]
  - STAPHYLOCOCCAL SEPSIS [None]
